FAERS Safety Report 16917445 (Version 4)
Quarter: 2020Q1

REPORT INFORMATION
  Report Type: Spontaneous
  Country: BR (occurrence: BR)
  Receive Date: 20191015
  Receipt Date: 20200326
  Transmission Date: 20200409
  Serious: Yes (Other)
  Sender: FDA-Public Use
  Company Number: BR-GLAXOSMITHKLINE-BR2019GSK072491

PATIENT
  Age: 69 Year
  Sex: Female
  Weight: 99 kg

DRUGS (3)
  1. NUCALA [Suspect]
     Active Substance: MEPOLIZUMAB
     Indication: ASTHMA
     Dosage: 100 MG, UNK
     Dates: start: 20190220
  2. NUCALA [Suspect]
     Active Substance: MEPOLIZUMAB
     Dosage: UNK
     Dates: start: 20190624
  3. NUCALA [Suspect]
     Active Substance: MEPOLIZUMAB
     Dosage: UNK
     Dates: start: 20190726

REACTIONS (21)
  - Injection site mass [Unknown]
  - Hypersensitivity [Unknown]
  - Nasopharyngitis [Recovered/Resolved]
  - Osteoarthritis [Unknown]
  - Influenza [Unknown]
  - Unevaluable event [Not Recovered/Not Resolved]
  - Weight increased [Unknown]
  - Cataract [Unknown]
  - Diabetes mellitus [Unknown]
  - Cough [Recovered/Resolved]
  - Glucose tolerance impaired [Unknown]
  - Injection site discolouration [Unknown]
  - Fatigue [Unknown]
  - Incorrect product administration duration [Unknown]
  - Sneezing [Unknown]
  - Memory impairment [Unknown]
  - Productive cough [Unknown]
  - Transplant failure [Unknown]
  - Product availability issue [Unknown]
  - Decreased appetite [Unknown]
  - Corneal transplant [Unknown]

NARRATIVE: CASE EVENT DATE: 20200202
